FAERS Safety Report 9500768 (Version 2)
Quarter: 2013Q3

REPORT INFORMATION
  Report Type: Spontaneous
  Country: US (occurrence: US)
  Receive Date: 20130905
  Receipt Date: 20130905
  Transmission Date: 20140515
  Serious: Yes (Hospitalization)
  Sender: FDA-Public Use
  Company Number: US-ELI_LILLY_AND_COMPANY-US201307008956

PATIENT
  Sex: Female
  Weight: 124.2 kg

DRUGS (13)
  1. HUMALOG LISPRO [Suspect]
     Indication: TYPE 2 DIABETES MELLITUS
     Dosage: UNK, UNKNOWN
     Route: 065
  2. HUMALOG LISPRO [Suspect]
     Dosage: UNK, UNKNOWN
     Route: 065
  3. LANTUS [Concomitant]
     Dosage: 54 IU, BID
     Route: 065
  4. SYMLIN [Concomitant]
     Dosage: 120 UG, BID
     Route: 065
  5. OXYCODONE [Concomitant]
  6. METOPROLOL [Concomitant]
     Dosage: 50 DF, BID
  7. DIAZEPAM [Concomitant]
     Dosage: UNK, PRN
  8. ALBUTEROL SULFATE [Concomitant]
  9. LEVOTHYROXINE [Concomitant]
     Dosage: 75 UG, QD
  10. DIOVAN [Concomitant]
     Dosage: 160 DF, QD
  11. FOSINOPRIL [Concomitant]
     Dosage: 20 DF, QD
  12. HYDROCHLOROTHIAZIDE [Concomitant]
     Dosage: 25 DF, QD
  13. PLAVIX [Concomitant]
     Dosage: 75 DF, QD

REACTIONS (9)
  - Asthma [Unknown]
  - Hypoaesthesia [Unknown]
  - Blood glucose increased [Unknown]
  - Radiculopathy [Unknown]
  - Malaise [Unknown]
  - Blood glucose increased [Unknown]
  - Blood glucose decreased [Unknown]
  - Drug ineffective [Unknown]
  - Underdose [Unknown]
